FAERS Safety Report 22335805 (Version 1)
Quarter: 2023Q2

REPORT INFORMATION
  Report Type: Report from Study
  Country: US (occurrence: US)
  Receive Date: 20230518
  Receipt Date: 20230518
  Transmission Date: 20230722
  Serious: Yes (Hospitalization, Other)
  Sender: FDA-Public Use
  Company Number: US-ABBVIE-4339818

PATIENT
  Age: 70 Year
  Sex: Female
  Weight: 52 kg

DRUGS (28)
  1. HUMIRA [Suspect]
     Active Substance: ADALIMUMAB
     Indication: Crohn^s disease
     Dosage: CITRATE FREE FORM STRENGTH: 40 MG
     Route: 058
     Dates: start: 20210115
  2. FORTEO [Concomitant]
     Active Substance: TERIPARATIDE
     Indication: Product used for unknown indication
     Dosage: 600 MCG/2.4ML INJECTOR PEN. INJECT 20 MCG SUBCUTANEOUSLY ONCE DAILY
  3. ZOFRAN [Concomitant]
     Active Substance: ONDANSETRON HYDROCHLORIDE
     Indication: Product used for unknown indication
     Dosage: INJECTION 4 MG
     Route: 042
  4. FORTEO [Concomitant]
     Active Substance: TERIPARATIDE
     Indication: Product used for unknown indication
     Dosage: 620 MCG/2.48ML INJECTOR PEN INJECT 0.08ML(20 MCG TOTAL)UNDER THE SKIN EVERY 1 DAY DX:M81.0
  5. CALCIUM CITRATE\VITAMIN D [Concomitant]
     Active Substance: CALCIUM CITRATE\VITAMIN D
     Indication: Product used for unknown indication
     Dosage: 1 TABLET, ORAL, 2 TIMES DAILY, FIRST DOSE ON THU 9/8/22 AT 2100
  6. MELATONIN [Concomitant]
     Active Substance: MELATONIN
     Indication: Product used for unknown indication
     Dosage: 5 MG, ORAL, EVERY NIGHT AS NEEDED, FOR SLEEP, STARTING ON THU 9/8/22 AT 1218
  7. LEVAQUIN [Concomitant]
     Active Substance: LEVOFLOXACIN
     Indication: Product used for unknown indication
     Dosage: TAKE 1 TAB 750 MG TOTAL BY MOUTH EVERY 1 DAY FOR  30 DAYS
  8. sodium chloride 0.9% (NS) [Concomitant]
     Indication: Product used for unknown indication
     Dosage: 0.1-50 ML/HR,
     Route: 042
  9. HYDROmorphone (DILAUDID) [Concomitant]
     Indication: Product used for unknown indication
     Dosage: INJECTION 0.5 MG
     Route: 042
  10. DEXTROSE [Concomitant]
     Active Substance: DEXTROSE\DEXTROSE MONOHYDRATE
     Indication: Product used for unknown indication
     Dosage: 50 % INJECTION 25 ML INTRAVENOUS, AS NEEDED
  11. dicyclomine (BENTYL) [Concomitant]
     Indication: Product used for unknown indication
     Dosage: TAKE ONE CAPSULE (10 MG) BY MOUTH. TWICE DAILY AS NEEDED FOR PAIN
  12. glucagon (human rDNA) [Concomitant]
     Indication: Product used for unknown indication
     Dosage: INJECTION 1 MG
     Route: 058
  13. FLOMAX [Concomitant]
     Active Substance: TAMSULOSIN HYDROCHLORIDE
     Indication: Product used for unknown indication
     Dosage: TAKE 1 CAPSULE (0.4 MG TOTAL) BY MOUTH NIGHTLY
  14. megestrol ( MEGACE) [Concomitant]
     Indication: Product used for unknown indication
     Dosage: TAKE 1 TAB 20 MG TOTAL BY MOUTH EVERY 1 DAY FOR 30 DAYS
  15. cvs vitamin c [Concomitant]
     Indication: Product used for unknown indication
     Dosage: TAKE 1 TABLET BY MOUTH
  16. indapamide (LOZOL) [Concomitant]
     Indication: Product used for unknown indication
     Dosage: TAKE 1 TAB (1.25 MG TOTAL) BY MOUTH EVERY MORNING
  17. POTASSIUM CHLORIDE [Concomitant]
     Active Substance: POTASSIUM CHLORIDE
     Indication: Product used for unknown indication
     Dosage: TAKE 1 TAB 10 MEQ BY MOUTH EVERY 1 DAY
  18. levothyroxine (SYNTHROID LEVOTHROID) [Concomitant]
     Indication: Product used for unknown indication
     Dosage: TAKE 1 TAB. 112 MCG TOTAL BY MOUTH EVERY 1 DAY AT 6 AM
  19. IBUPROFEN [Concomitant]
     Active Substance: IBUPROFEN
     Indication: Product used for unknown indication
     Dosage: EVERY 6 HOURS, FIRST DOSE ON THU 9/8/22 AT 1230GIVE 6 HOURS AFTER LAST DOSE FROM SURGERY
  20. vitamin B-12 (CYANOCOBALAMIN) [Concomitant]
     Indication: Product used for unknown indication
     Dosage: TAKE 1000 MCG BY MOUTH EVERY 1 DAY
  21. TYLENOL [Concomitant]
     Active Substance: ACETAMINOPHEN
     Indication: Product used for unknown indication
     Dosage: 650 MG, ORAL, EVERY 6 HOURS, FIRST DOSE ON MON 9/12/22 AT 0830
  22. ADVAIR HAF [Concomitant]
     Indication: Product used for unknown indication
     Dosage: 230-21 TAKE 2 PUFFS BY MOUTH TWICE A DAY
  23. albuterol HAF [Concomitant]
     Indication: Product used for unknown indication
     Dosage: TAKE 2 PUFFS BY MOUTH EVERY 6 HOURS
  24. ROXICODONE [Concomitant]
     Active Substance: OXYCODONE HYDROCHLORIDE
     Indication: Product used for unknown indication
     Dosage: TAKE 1 TAB 5 MG BY MOUTH EVERY 4 HOURS
  25. pantoprazole (PROTONIX)  EC [Concomitant]
     Indication: Product used for unknown indication
     Dosage: FIRST DOSE ON FRI 9/9/22 AT 0600DO NOT CRUSH
  26. LOVENOX [Concomitant]
     Active Substance: ENOXAPARIN SODIUM
     Indication: Product used for unknown indication
     Dosage: 40 MG, SUBCUTANEOUS ENOXAPARIN, EVERY DAY, FIRST DOSE ON FRI 9/9/22 AT 0900
  27. CALCIUM CARBONATE [Concomitant]
     Active Substance: CALCIUM CARBONATE
     Indication: Product used for unknown indication
     Dosage: TAKE 1200MG BY MOUTH EVERY MORNING 600MG AM AND PM
  28. fluticasone-salmeterol (AdvAIR HFA) [Concomitant]
     Indication: Product used for unknown indication
     Dosage: 2 PUFF, INHALATION, 2 TIMES DAILY - RT,
     Dates: start: 20220908

REACTIONS (15)
  - Hospitalisation [Not Recovered/Not Resolved]
  - Large intestinal stenosis [Unknown]
  - Infection [Unknown]
  - Crohn^s disease [Unknown]
  - Procedural pain [Unknown]
  - Immunodeficiency [Unknown]
  - Malnutrition [Unknown]
  - Hypothyroidism [Unknown]
  - Gastrointestinal stenosis [Unknown]
  - Colostomy closure [Unknown]
  - Hypercoagulation [Unknown]
  - Underweight [Unknown]
  - Tubo-ovarian abscess [Unknown]
  - Diverticulitis [Unknown]
  - Pelvic inflammatory disease [Unknown]

NARRATIVE: CASE EVENT DATE: 20220507
